FAERS Safety Report 12381772 (Version 1)
Quarter: 2016Q2

REPORT INFORMATION
  Report Type: Spontaneous
  Country: US (occurrence: US)
  Receive Date: 20160518
  Receipt Date: 20160518
  Transmission Date: 20160815
  Serious: No
  Sender: FDA-Public Use
  Company Number: US-BAYER-2016-095804

PATIENT
  Age: 77 Year
  Sex: Female
  Weight: 52.15 kg

DRUGS (2)
  1. ALEVE [Suspect]
     Active Substance: NAPROXEN SODIUM
     Indication: BACK PAIN
     Dosage: UNK
     Route: 048
     Dates: start: 20160516
  2. CITALOPRAM [Concomitant]
     Active Substance: CITALOPRAM HYDROBROMIDE

REACTIONS (1)
  - Product use issue [None]

NARRATIVE: CASE EVENT DATE: 20160516
